FAERS Safety Report 23426303 (Version 5)
Quarter: 2025Q1

REPORT INFORMATION
  Report Type: Report from Study
  Country: IT (occurrence: IT)
  Receive Date: 20240122
  Receipt Date: 20250227
  Transmission Date: 20250409
  Serious: Yes (Death, Hospitalization, Other)
  Sender: TAKEDA
  Company Number: IT-TAKEDA-2024TUS004700

PATIENT
  Sex: Male

DRUGS (1)
  1. HUMAN IMMUNOGLOBULIN G\HYALURONIDASE RECOMBINANT HUMAN [Suspect]
     Active Substance: HUMAN IMMUNOGLOBULIN G\HYALURONIDASE (HUMAN RECOMBINANT)
     Indication: Primary immunodeficiency syndrome
     Dosage: 15 GRAM, Q4WEEKS
     Dates: start: 20240109

REACTIONS (4)
  - Death [Fatal]
  - Autoimmune neuropathy [Recovered/Resolved]
  - Oxygen saturation decreased [Recovering/Resolving]
  - Dyspnoea [Recovering/Resolving]

NARRATIVE: CASE EVENT DATE: 20240312
